FAERS Safety Report 6986920-2 (Version None)
Quarter: 2010Q3

REPORT INFORMATION
  Report Type: 
  Country: None (occurrence: None)
  Receive Date: 20100915
  Receipt Date: 20090810
  Transmission Date: 20110219
  Serious: Yes (Other)
  Sender: FDA-Public Use
  Company Number: US-WYE-H10551009

PATIENT
  Age: 35 Year
  Sex: Female
  Weight: 56.75 kg

DRUGS (2)
  1. PRISTIQ [Suspect]
     Route: 048
     Dates: start: 20090720, end: 20090807
  2. TRAMADOL [Suspect]
     Dosage: UNKNOWN DAILY DOSE
     Route: 048
     Dates: end: 20090807

REACTIONS (1)
  - GRAND MAL CONVULSION [None]
